FAERS Safety Report 7655425-8 (Version None)
Quarter: 2011Q3

REPORT INFORMATION
  Report Type: 
  Country: None (occurrence: None)
  Receive Date: 20110804
  Receipt Date: 20110801
  Transmission Date: 20111222
  Serious: Yes (Death)
  Sender: FDA-Public Use
  Company Number: NL-JNJFOC-20110800046

PATIENT

DRUGS (55)
  1. DOXORUBICIN HYDROCHLORIDE [Suspect]
     Route: 042
  2. VINCRISTINE [Suspect]
     Route: 042
  3. PREDNISONE [Suspect]
     Route: 048
  4. MABCAMPATH [Suspect]
     Indication: T-CELL LYMPHOMA
     Route: 058
  5. MABCAMPATH [Suspect]
     Route: 058
  6. ANTIHISTAMINES [Concomitant]
     Indication: PREMEDICATION
     Route: 065
  7. DOXORUBICIN HYDROCHLORIDE [Suspect]
     Route: 042
  8. DOXORUBICIN HYDROCHLORIDE [Suspect]
     Route: 042
  9. DOXORUBICIN HYDROCHLORIDE [Suspect]
     Route: 042
  10. DOXORUBICIN HYDROCHLORIDE [Suspect]
     Route: 042
  11. CYCLOPHOSPHAMIDE [Suspect]
     Route: 042
  12. VINCRISTINE [Suspect]
     Route: 042
  13. PREDNISONE [Suspect]
     Route: 048
  14. MABCAMPATH [Suspect]
     Route: 058
  15. DOXORUBICIN HYDROCHLORIDE [Suspect]
     Route: 042
  16. CYCLOPHOSPHAMIDE [Suspect]
     Route: 042
  17. VINCRISTINE [Suspect]
     Route: 042
  18. PREDNISONE [Suspect]
     Route: 048
  19. PREDNISONE [Suspect]
     Route: 048
  20. ACETAMINOPHEN [Concomitant]
     Indication: PREMEDICATION
     Route: 065
  21. CYCLOPHOSPHAMIDE [Suspect]
     Indication: T-CELL LYMPHOMA
     Route: 042
  22. CYCLOPHOSPHAMIDE [Suspect]
     Route: 042
  23. VINCRISTINE [Suspect]
     Indication: T-CELL LYMPHOMA
     Dosage: A MAXIMUM DOSE OF 2 MG
     Route: 042
  24. VINCRISTINE [Suspect]
     Route: 042
  25. PREDNISONE [Suspect]
     Route: 048
  26. MABCAMPATH [Suspect]
     Dosage: 1ST DOSE- 3 MG, 2ND DOSE- 2 MG. DURING FIRST INJECTION, OBSERVED WITH INTRAVENOUS LINE FOR 2 HOURS
     Route: 058
  27. PEGFILGRASTIM [Concomitant]
     Indication: PRODUCT USED FOR UNKNOWN INDICATION
     Route: 058
  28. DOXORUBICIN HYDROCHLORIDE [Suspect]
     Route: 042
  29. DOXORUBICIN HYDROCHLORIDE [Suspect]
     Route: 042
  30. DOXORUBICIN HYDROCHLORIDE [Suspect]
     Route: 042
  31. DOXORUBICIN HYDROCHLORIDE [Suspect]
     Route: 042
  32. MABCAMPATH [Suspect]
     Route: 058
  33. VALACICLOVIR [Concomitant]
     Indication: PROPHYLAXIS
     Dosage: PNEUMOCYSTIS JIROVECI AND HERPES INFECTIONS PROPHYLAXIS
     Route: 065
  34. DOXORUBICIN HYDROCHLORIDE [Suspect]
     Route: 042
  35. CYCLOPHOSPHAMIDE [Suspect]
     Route: 042
  36. PREDNISONE [Suspect]
     Route: 048
  37. MABCAMPATH [Suspect]
     Route: 058
  38. MABCAMPATH [Suspect]
     Route: 058
  39. FLUCONAZOLE [Concomitant]
     Indication: PROPHYLAXIS
     Dosage: PNEUMOCYSTIS JIROVECI AND HERPES INFECTIONS PROPHYLAXIS
     Route: 065
  40. DOXORUBICIN HYDROCHLORIDE [Suspect]
     Route: 042
  41. DOXORUBICIN HYDROCHLORIDE [Suspect]
     Route: 042
  42. DOXORUBICIN HYDROCHLORIDE [Suspect]
     Route: 042
  43. CYCLOPHOSPHAMIDE [Suspect]
     Route: 042
  44. VINCRISTINE [Suspect]
     Route: 042
  45. MABCAMPATH [Suspect]
     Route: 058
  46. COTRIM [Concomitant]
     Indication: PROPHYLAXIS
     Dosage: PNEUMOCYSTIS JIROVECI AND HERPES INFECTIONS PROPHYLAXIS
     Route: 065
  47. DOXORUBICIN HYDROCHLORIDE [Suspect]
     Indication: T-CELL LYMPHOMA
     Route: 042
  48. DOXORUBICIN HYDROCHLORIDE [Suspect]
     Route: 042
  49. CYCLOPHOSPHAMIDE [Suspect]
     Route: 042
  50. CYCLOPHOSPHAMIDE [Suspect]
     Route: 042
  51. VINCRISTINE [Suspect]
     Route: 042
  52. VINCRISTINE [Suspect]
     Route: 042
  53. PREDNISONE [Suspect]
     Indication: T-CELL LYMPHOMA
     Route: 048
  54. PREDNISONE [Suspect]
     Route: 048
  55. ALLOPURINOL [Concomitant]
     Indication: PROPHYLAXIS
     Route: 065

REACTIONS (1)
  - INFECTION [None]
